FAERS Safety Report 5794629-6 (Version None)
Quarter: 2008Q2

REPORT INFORMATION
  Report Type: 
  Country: None (occurrence: None)
  Receive Date: 20080627
  Receipt Date: 20080627
  Transmission Date: 20081010
  Serious: Yes (Hospitalization)
  Sender: FDA-Public Use
  Company Number: None

PATIENT

DRUGS (3)
  1. ENALAPRIL MALEATE [Suspect]
     Indication: HYPERTENSION
     Dosage: 5 MG PO QD  PRIOR TO ER VISIT
     Route: 048
  2. PRAVACHOL [Concomitant]
  3. PHOSLO [Concomitant]

REACTIONS (2)
  - ANGIOEDEMA [None]
  - NAUSEA [None]
